FAERS Safety Report 23333422 (Version 1)
Quarter: 2023Q4

REPORT INFORMATION
  Report Type: Spontaneous
  Country: US (occurrence: US)
  Receive Date: 20231222
  Receipt Date: 20231222
  Transmission Date: 20240109
  Serious: Yes (Other)
  Sender: FDA-Public Use
  Company Number: US-BEH-2023166761

PATIENT
  Age: 55 Year
  Sex: Female

DRUGS (5)
  1. HIZENTRA [Suspect]
     Active Substance: HUMAN IMMUNOGLOBULIN G
     Indication: Immunodeficiency common variable
     Dosage: 10 GRAM, QW
     Route: 058
     Dates: start: 20230404
  2. EPINEPHRINE [Concomitant]
     Active Substance: EPINEPHRINE
  3. KLONOPIN [Concomitant]
     Active Substance: CLONAZEPAM
  4. LIDOCAINE [Concomitant]
     Active Substance: LIDOCAINE
  5. ROSUVASTATIN [Concomitant]
     Active Substance: ROSUVASTATIN

REACTIONS (6)
  - Drug ineffective [Unknown]
  - Nausea [Recovered/Resolved]
  - Dyspnoea [Recovered/Resolved]
  - No adverse event [Unknown]
  - Inappropriate schedule of product administration [Unknown]
  - Product dose omission issue [Unknown]

NARRATIVE: CASE EVENT DATE: 20231213
